FAERS Safety Report 7609674-5 (Version None)
Quarter: 2011Q3

REPORT INFORMATION
  Report Type: 
  Country: None (occurrence: None)
  Receive Date: 20110714
  Receipt Date: 20110705
  Transmission Date: 20111222
  Serious: Yes (Hospitalization, Other)
  Sender: FDA-Public Use
  Company Number: FR-ABBOTT-11P-056-0723761-00

PATIENT
  Sex: Female
  Weight: 58 kg

DRUGS (2)
  1. FENOFIBRATE [Suspect]
     Route: 048
     Dates: end: 20110101
  2. FENOFIBRATE [Suspect]
     Indication: HYPERCHOLESTEROLAEMIA
     Dosage: ONCE
     Route: 048
     Dates: start: 20110216, end: 20110401

REACTIONS (11)
  - ASTHENIA [None]
  - ARTHRALGIA [None]
  - HEADACHE [None]
  - RASH PAPULAR [None]
  - PAIN IN EXTREMITY [None]
  - FULL BLOOD COUNT ABNORMAL [None]
  - TRANSAMINASES INCREASED [None]
  - OEDEMA PERIPHERAL [None]
  - FEELING HOT [None]
  - INFLAMMATION [None]
  - LEUKOCYTOCLASTIC VASCULITIS [None]
